FAERS Safety Report 8583583-X (Version None)
Quarter: 2012Q3

REPORT INFORMATION
  Report Type: 
  Country: None (occurrence: None)
  Receive Date: 20120809
  Receipt Date: 20120727
  Transmission Date: 20120928
  Serious: Yes (Disabling)
  Sender: FDA-Public Use
  Company Number: NL-MYLANLABS-2012S1015693

PATIENT
  Age: 31 Year
  Sex: Male

DRUGS (1)
  1. TERBINAFINE HCL [Suspect]
     Indication: DERMATOPHYTOSIS
     Route: 048

REACTIONS (1)
  - HEARING IMPAIRED [None]
